FAERS Safety Report 7231337-9 (Version None)
Quarter: 2011Q1

REPORT INFORMATION
  Report Type: 
  Country: None (occurrence: None)
  Receive Date: 20110118
  Receipt Date: 20110106
  Transmission Date: 20110831
  Serious: Yes (Other)
  Sender: FDA-Public Use
  Company Number: PHEH2009US03892

PATIENT
  Sex: Male

DRUGS (1)
  1. AREDIA [Suspect]

REACTIONS (15)
  - GENERAL PHYSICAL HEALTH DETERIORATION [None]
  - GINGIVAL SWELLING [None]
  - ANAEMIA [None]
  - NASAL SEPTUM DEVIATION [None]
  - BONE DISORDER [None]
  - ANHEDONIA [None]
  - ANXIETY [None]
  - DISABILITY [None]
  - ATRIAL SEPTAL DEFECT [None]
  - PULMONARY VALVE STENOSIS [None]
  - OSTEONECROSIS OF JAW [None]
  - PAIN [None]
  - MUCOSAL INFLAMMATION [None]
  - TOOTH ABSCESS [None]
  - MOUTH ULCERATION [None]
